FAERS Safety Report 6725972-1 (Version None)
Quarter: 2010Q2

REPORT INFORMATION
  Report Type: 
  Country: None (occurrence: None)
  Receive Date: 20100514
  Receipt Date: 20100510
  Transmission Date: 20101027
  Serious: Yes (Other)
  Sender: FDA-Public Use
  Company Number: US-ALLERGAN-1004953US

PATIENT
  Age: 62 Year
  Sex: Female

DRUGS (4)
  1. ACUVAIL [Suspect]
     Indication: POSTOPERATIVE CARE
     Dosage: 2 GTT, BID
     Dates: start: 20100311, end: 20100312
  2. PAXIL [Concomitant]
  3. SINGULAIR [Concomitant]
  4. PROVIGIL [Concomitant]

REACTIONS (2)
  - ULCERATIVE KERATITIS [None]
  - VISION BLURRED [None]
